FAERS Safety Report 19209153 (Version 2)
Quarter: 2021Q2

REPORT INFORMATION
  Report Type: Spontaneous
  Country: AT (occurrence: AT)
  Receive Date: 20210503
  Receipt Date: 20210511
  Transmission Date: 20210717
  Serious: Yes (Disabling, Other)
  Sender: FDA-Public Use
  Company Number: AT-TEVA-2021-AT-1906773

PATIENT
  Age: 40 Year
  Sex: Male

DRUGS (1)
  1. AJOVY [Suspect]
     Active Substance: FREMANEZUMAB-VFRM
     Indication: CLUSTER HEADACHE
     Route: 065
     Dates: start: 20210225

REACTIONS (5)
  - Embolism [Unknown]
  - Off label use [Unknown]
  - Peripheral embolism [Not Recovered/Not Resolved]
  - Aortic thrombosis [Not Recovered/Not Resolved]
  - Peripheral arterial occlusive disease [Not Recovered/Not Resolved]

NARRATIVE: CASE EVENT DATE: 20210302
